FAERS Safety Report 6663903-3 (Version None)
Quarter: 2010Q2

REPORT INFORMATION
  Report Type: 
  Country: None (occurrence: None)
  Receive Date: 20100401
  Receipt Date: 20100325
  Transmission Date: 20101027
  Serious: Yes (Hospitalization, Disabling, Other)
  Sender: FDA-Public Use
  Company Number: PR-MERCK-0805USA02797

PATIENT
  Age: 53 Year
  Sex: Female

DRUGS (10)
  1. FOSAMAX [Suspect]
     Indication: OSTEOPOROSIS
     Route: 048
     Dates: start: 20020912, end: 20030801
  2. FOSAMAX [Suspect]
     Route: 048
     Dates: start: 20030903, end: 20060801
  3. NORVASC [Concomitant]
     Route: 065
     Dates: start: 20010101, end: 20040101
  4. PLAVIX [Concomitant]
     Route: 065
     Dates: start: 20010101, end: 20040101
  5. AMITRIPTYLINE HYDROCHLORIDE [Concomitant]
     Route: 065
     Dates: start: 20010101, end: 20040101
  6. ZESTORETIC [Concomitant]
     Route: 065
     Dates: start: 20010101, end: 20040101
  7. COUMADIN [Concomitant]
     Route: 065
     Dates: start: 20010101, end: 20040101
  8. LISINOPRIL [Concomitant]
     Route: 065
     Dates: start: 20010101, end: 20050101
  9. SYNTHROID [Concomitant]
     Route: 065
     Dates: start: 20010101, end: 20040101
  10. CARTIA XT [Concomitant]
     Route: 065
     Dates: start: 20010101, end: 20040101

REACTIONS (24)
  - ABDOMINAL PAIN [None]
  - ANXIETY [None]
  - BLOOD DISORDER [None]
  - BONE DENSITY DECREASED [None]
  - BONE DISORDER [None]
  - CARDIAC DISORDER [None]
  - CEREBROVASCULAR ACCIDENT [None]
  - CHRONIC FATIGUE SYNDROME [None]
  - DEAFNESS NEUROSENSORY [None]
  - DEPRESSION [None]
  - GASTROOESOPHAGEAL REFLUX DISEASE [None]
  - HYPERCOAGULATION [None]
  - HYPERTENSION [None]
  - IMPAIRED HEALING [None]
  - INFECTION [None]
  - LOOSE TOOTH [None]
  - NEUROPATHY PERIPHERAL [None]
  - OSTEONECROSIS [None]
  - SIALOADENITIS [None]
  - SYSTEMIC LUPUS ERYTHEMATOSUS [None]
  - THROMBOSIS [None]
  - UMBILICAL HERNIA [None]
  - VASCULAR PSEUDOANEURYSM [None]
  - VERTIGO POSITIONAL [None]
